FAERS Safety Report 21422454 (Version 2)
Quarter: 2022Q4

REPORT INFORMATION
  Report Type: Spontaneous
  Country: US (occurrence: US)
  Receive Date: 20221007
  Receipt Date: 20221010
  Transmission Date: 20230112
  Serious: No
  Sender: FDA-Public Use
  Company Number: US-PFIZER INC-202201209774

PATIENT
  Age: 85 Year
  Sex: Female
  Weight: 51.26 kg

DRUGS (5)
  1. PAXLOVID [Suspect]
     Active Substance: NIRMATRELVIR\RITONAVIR
     Indication: COVID-19 treatment
     Dosage: 3 DF, 2X/DAY (3 TABLETS IN THE MORNING AND 3 IN THE EVENING)
     Route: 048
     Dates: start: 20221006
  2. ZINC [Concomitant]
     Active Substance: ZINC
     Indication: COVID-19 treatment
     Dosage: 50 MG, 2X/DAY (TOOK 50 MG BEFORE BEDTIME AND THIS MORNING)
  3. OPTIVITE PMT [Concomitant]
     Indication: Dry eye
     Dosage: 1 DF, DAILY (1 PILL DAILY BY MOUTH)
     Route: 048
  4. VITAMIN C [Concomitant]
     Active Substance: ASCORBIC ACID
     Indication: COVID-19 treatment
     Dosage: 500 MG, 1X/DAY (500MG ONCE DAILY BY MOUTH) (TAKES AT LUNCHTIME)
     Route: 048
  5. CALCIUM [Concomitant]
     Active Substance: CALCIUM
     Indication: Osteoporosis
     Dosage: 600 MG, DAILY
     Route: 048

REACTIONS (3)
  - Dysgeusia [Not Recovered/Not Resolved]
  - Decreased appetite [Unknown]
  - Sinus disorder [Not Recovered/Not Resolved]

NARRATIVE: CASE EVENT DATE: 20221001
